FAERS Safety Report 8854102 (Version 2)
Quarter: 2013Q1

REPORT INFORMATION
  Report Type: Spontaneous
  Country: US (occurrence: None)
  Receive Date: 20121018
  Receipt Date: 20130107
  Transmission Date: 20140127
  Serious: Yes (Death, Other)
  Sender: FDA-Public Use
  Company Number: TPA2012A07735

PATIENT
  Age: 55 Year
  Sex: Male

DRUGS (5)
  1. ACTOS (PIOGLITAZONE HYDROCHLORIDE) [Suspect]
     Indication: TYPE 2 DIABETES MELLITUS
     Dates: start: 200208, end: 200212
  2. METFORMIN (METFORMIN) [Concomitant]
  3. PRECOSE (ACARBOSE) [Concomitant]
  4. LEVEMIR (INSULIN DETEMIR) [Concomitant]
  5. AMARYL (GLIMEPIRIDE) [Concomitant]

REACTIONS (1)
  - Bladder cancer [None]
